FAERS Safety Report 22625365 (Version 1)
Quarter: 2023Q2

REPORT INFORMATION
  Report Type: Spontaneous
  Country: IT (occurrence: IT)
  Receive Date: 20230621
  Receipt Date: 20230621
  Transmission Date: 20230722
  Serious: Yes (Hospitalization, Other)
  Sender: FDA-Public Use
  Company Number: IT-MINISAL02-916941

PATIENT
  Age: 63 Year
  Sex: Male
  Weight: 81 kg

DRUGS (2)
  1. GEMCITABINE [Suspect]
     Active Substance: GEMCITABINE
     Indication: Adenocarcinoma pancreas
     Dosage: 1900 MILLIGRAM, UNK
     Route: 065
     Dates: start: 20230131, end: 20230216
  2. CAPECITABINE [Suspect]
     Active Substance: CAPECITABINE
     Indication: Adenocarcinoma pancreas
     Dosage: 3000 MILLIGRAM, BID
     Route: 048
     Dates: start: 20230201, end: 20230214

REACTIONS (3)
  - Skin exfoliation [Unknown]
  - Diarrhoea haemorrhagic [Unknown]
  - Pyrexia [Recovering/Resolving]

NARRATIVE: CASE EVENT DATE: 20230216
